FAERS Safety Report 9559789 (Version 1)
Quarter: 2013Q3

REPORT INFORMATION
  Report Type: Spontaneous
  Country: US (occurrence: US)
  Receive Date: 20130927
  Receipt Date: 20130927
  Transmission Date: 20140515
  Serious: Yes (Other)
  Sender: FDA-Public Use
  Company Number: US-PFIZER INC-2013276759

PATIENT
  Sex: Male

DRUGS (1)
  1. LYRICA [Suspect]
     Indication: COMPLEX REGIONAL PAIN SYNDROME
     Dosage: UNK

REACTIONS (10)
  - Off label use [Unknown]
  - Balance disorder [Unknown]
  - Gait disturbance [Unknown]
  - Fall [Unknown]
  - Grip strength decreased [Unknown]
  - Quality of life decreased [Unknown]
  - Arthropathy [Unknown]
  - Tremor [Unknown]
  - Musculoskeletal stiffness [Unknown]
  - Pain [Unknown]
